FAERS Safety Report 4809349-1 (Version None)
Quarter: 2005Q4

REPORT INFORMATION
  Report Type: 
  Country: None (occurrence: None)
  Receive Date: 20051021
  Receipt Date: 20030212
  Transmission Date: 20060501
  Serious: Yes (Hospitalization, Other)
  Sender: FDA-Public Use
  Company Number: USA030228671

PATIENT
  Age: 65 Year
  Sex: Male

DRUGS (4)
  1. ZYPREXA [Suspect]
     Indication: DEMENTIA
     Dosage: 5 M G/1 DAY
  2. ZYPREXA [Suspect]
     Indication: HALLUCINATION
     Dosage: 5 M G/1 DAY
  3. CELEXA [Concomitant]
  4. ARICEPT [Concomitant]

REACTIONS (1)
  - NEUROLEPTIC MALIGNANT SYNDROME [None]
